FAERS Safety Report 12411568 (Version 1)
Quarter: 2016Q2

REPORT INFORMATION
  Report Type: Spontaneous
  Country: US (occurrence: None)
  Receive Date: 20160526
  Receipt Date: 20160526
  Transmission Date: 20160815
  Serious: Yes (Other)
  Sender: FDA-Public Use
  Company Number: None

PATIENT
  Age: 68 Year
  Sex: Female
  Weight: 70.31 kg

DRUGS (4)
  1. CRANBERRY PILLS [Concomitant]
  2. MULTI VIT [Concomitant]
  3. LOSARTAN. [Concomitant]
     Active Substance: LOSARTAN
  4. HYDROCHLOROTHIAZIDE 25MG [Suspect]
     Active Substance: HYDROCHLOROTHIAZIDE
     Indication: HYPERTENSION
     Route: 048
     Dates: start: 20160323, end: 201604

REACTIONS (5)
  - Dizziness [None]
  - Back pain [None]
  - Pain in extremity [None]
  - Blood pressure inadequately controlled [None]
  - Renal cyst [None]

NARRATIVE: CASE EVENT DATE: 20160323
